FAERS Safety Report 20712410 (Version 1)
Quarter: 2022Q2

REPORT INFORMATION
  Report Type: Spontaneous
  Country: FR (occurrence: FR)
  Receive Date: 20220415
  Receipt Date: 20220415
  Transmission Date: 20220721
  Serious: Yes (Hospitalization, Other)
  Sender: FDA-Public Use
  Company Number: FR-AFSSAPS-MA20221140

PATIENT
  Age: 78 Year
  Sex: Female

DRUGS (5)
  1. CARBOPLATIN [Suspect]
     Active Substance: CARBOPLATIN
     Indication: Lung neoplasm malignant
     Dosage: UNK UNK, CYCLICAL
     Route: 042
  2. KEYTRUDA [Suspect]
     Active Substance: PEMBROLIZUMAB
     Indication: Lung neoplasm malignant
     Dosage: UNK UNK, CYCLICAL
     Route: 042
  3. OFLOXACIN [Suspect]
     Active Substance: OFLOXACIN
     Indication: Wound
     Dosage: UNK
     Route: 048
     Dates: start: 20220225, end: 20220309
  4. RIFAMPIN [Suspect]
     Active Substance: RIFAMPIN
     Indication: Wound
     Dosage: UNK
     Route: 048
     Dates: start: 20220225, end: 20220309
  5. TAXOL [Suspect]
     Active Substance: PACLITAXEL
     Indication: Lung neoplasm malignant
     Dosage: UNK UNK, CYCLICAL
     Route: 042

REACTIONS (1)
  - Dermatitis bullous [Unknown]

NARRATIVE: CASE EVENT DATE: 20220309
